FAERS Safety Report 8825375 (Version 8)
Quarter: 2013Q4

REPORT INFORMATION
  Report Type: Report from Study
  Country: JP (occurrence: JP)
  Receive Date: 20121004
  Receipt Date: 20131227
  Transmission Date: 20140711
  Serious: Yes (Death, Hospitalization, Other)
  Sender: FDA-Public Use
  Company Number: JP-VERTEX PHARMACEUTICAL INC.-2012-022273

PATIENT
  Age: 59 Year
  Sex: Male

DRUGS (317)
  1. ROZEREM [Concomitant]
     Dosage: 16 MG, QD
     Route: 048
     Dates: start: 20121119, end: 20121119
  2. ROZEREM [Concomitant]
     Dosage: 8 MG, QD
     Route: 048
     Dates: start: 20121120, end: 20121125
  3. ROZEREM [Concomitant]
     Dosage: 16 MG, QD
     Route: 048
     Dates: start: 20121126, end: 20121126
  4. ROZEREM [Concomitant]
     Dosage: 8 MG, QD
     Route: 048
     Dates: start: 20121127, end: 20130123
  5. HIRUDOID [Concomitant]
     Dosage: 25 G, QD
     Route: 061
     Dates: start: 20121019, end: 20121019
  6. HIRUDOID [Concomitant]
     Dosage: 25 G, QD
     Route: 061
     Dates: start: 20121110, end: 20121119
  7. MOHRUS L [Concomitant]
     Dosage: 7 SHEET, QD
     Route: 061
     Dates: start: 20121019, end: 20121019
  8. MOHRUS L [Concomitant]
     Dosage: 7 SHEET, QD
     Route: 061
     Dates: start: 20121110, end: 20121121
  9. LOXONIN [Concomitant]
     Dosage: 7 SHEET, QD
     Route: 061
     Dates: start: 20121027, end: 20121027
  10. LOXONIN [Concomitant]
     Dosage: 7 SHEET, QD
     Route: 061
     Dates: start: 20121110, end: 20121113
  11. LOXONIN [Concomitant]
     Dosage: 7 SHEET, QD
     Route: 061
     Dates: start: 20121122, end: 20121126
  12. LOXONIN [Concomitant]
     Dosage: 7 SHEET, QD
     Route: 061
     Dates: start: 20121130, end: 20121201
  13. LOXONIN [Concomitant]
     Dosage: 7 SHEET, QD
     Route: 061
     Dates: start: 20121230, end: 20130104
  14. TSUMURA SHAKUYAKUKANZOTO EXTRACT GRANULES FOR ETHICAL USE [Concomitant]
     Dosage: 2.5 G, QD
     Route: 048
     Dates: start: 20121101, end: 20121101
  15. AMOBAN [Concomitant]
     Dosage: 10 MG, QD
     Route: 048
     Dates: start: 20121101, end: 20121105
  16. ISODINE [Concomitant]
     Dosage: 20 ML, QD
     Route: 049
     Dates: start: 20121105, end: 20121105
  17. ISODINE [Concomitant]
     Dosage: 120 ML, QD
     Route: 049
     Dates: start: 20121108, end: 20121108
  18. ISODINE [Concomitant]
     Dosage: 100 ML, QD
     Route: 049
     Dates: start: 20121109, end: 20121114
  19. ISODINE [Concomitant]
     Dosage: 100 ML, QD
     Route: 049
     Dates: start: 20121117, end: 20121120
  20. ISODINE [Concomitant]
     Dosage: 100 ML, QD
     Route: 049
     Dates: start: 20121128, end: 20121203
  21. ISODINE [Concomitant]
     Dosage: 20 ML, QD
     Route: 049
     Dates: start: 20121204, end: 20121204
  22. XYLOCAINE WITH EPINEPHRINE [Concomitant]
     Dosage: 5 ML, QD
     Route: 051
     Dates: start: 20121105, end: 20121105
  23. SEDIEL [Concomitant]
     Dosage: 10 MG, QD
     Route: 048
     Dates: start: 20121105, end: 20121106
  24. SEDIEL [Concomitant]
     Dosage: 10 MG, QD
     Route: 048
     Dates: start: 20121111, end: 20121111
  25. BESACOLIN [Concomitant]
     Dosage: 0.6 MG, QD
     Route: 048
     Dates: start: 20121108, end: 20121112
  26. BESACOLIN [Concomitant]
     Dosage: 1 G, QD
     Route: 048
     Dates: start: 20121113, end: 20130123
  27. TAMSULOSIN HYDROCHLORIDE [Concomitant]
     Dosage: .2 MG, QD
     Route: 048
     Dates: start: 20121108, end: 20130123
  28. CIPROFLOXACIN [Concomitant]
     Dosage: 1 DF, QD
     Route: 042
     Dates: start: 20121109, end: 20121109
  29. CIPROFLOXACIN [Concomitant]
     Dosage: 2 DF, QD
     Route: 042
     Dates: start: 20121110, end: 20121116
  30. CIPROFLOXACIN [Concomitant]
     Dosage: 1 DF, QD
     Route: 042
     Dates: start: 20121117, end: 20121117
  31. CIPROFLOXACIN [Concomitant]
     Dosage: 2 DF, QD
     Route: 042
     Dates: start: 20121118, end: 20121211
  32. AZUNOL [Concomitant]
     Dosage: 5 ML, QD
     Route: 049
     Dates: start: 20121112, end: 20121125
  33. AZUNOL [Concomitant]
     Dosage: 5 ML, QD
     Route: 049
     Dates: start: 20121226, end: 20121227
  34. AZUNOL [Concomitant]
     Dosage: 5 ML, QD
     Route: 049
     Dates: start: 20121229, end: 20121229
  35. AZUNOL [Concomitant]
     Dosage: 5 ML, QD
     Route: 049
     Dates: start: 20130103, end: 20130103
  36. AZUNOL [Concomitant]
     Dosage: 5 ML, QD
     Route: 049
     Dates: start: 20130106, end: 20130111
  37. AZUNOL [Concomitant]
     Dosage: 5 ML, QD
     Route: 049
     Dates: start: 20130113, end: 20130114
  38. AZUNOL [Concomitant]
     Dosage: 5 ML, QD
     Route: 049
     Dates: start: 20130116, end: 20130119
  39. AZUNOL [Concomitant]
     Dosage: 5 ML, QD
     Route: 049
     Dates: start: 20130121, end: 20130123
  40. UBRETID [Concomitant]
     Dosage: 5 MG, QD
     Route: 048
     Dates: start: 20121113, end: 20130123
  41. REBAMIPIDE [Concomitant]
     Dosage: 100 MG, QD
     Route: 048
     Dates: start: 20121115, end: 20121115
  42. REBAMIPIDE [Concomitant]
     Dosage: 200 MG, QD
     Route: 048
     Dates: start: 20121116, end: 20121116
  43. REBAMIPIDE [Concomitant]
     Dosage: 100 MG, QD
     Route: 048
     Dates: start: 20121117, end: 20121117
  44. REBAMIPIDE [Concomitant]
     Dosage: 200 MG, QD
     Route: 048
     Dates: start: 20121118, end: 20121119
  45. REBAMIPIDE [Concomitant]
     Dosage: 300 MG, QD
     Route: 048
     Dates: start: 20121120, end: 20121120
  46. REBAMIPIDE [Concomitant]
     Dosage: 100 MG, QD
     Route: 048
     Dates: start: 20121121, end: 20121121
  47. REBAMIPIDE [Concomitant]
     Dosage: 200 MG, QD
     Route: 048
     Dates: start: 20121122, end: 20121122
  48. REBAMIPIDE [Concomitant]
     Dosage: 100 MG, QD
     Route: 048
     Dates: start: 20121123, end: 20121123
  49. REBAMIPIDE [Concomitant]
     Dosage: 200 MG, QD
     Route: 048
     Dates: start: 20121124, end: 20121125
  50. REBAMIPIDE [Concomitant]
     Dosage: 100 MG, QD
     Route: 048
     Dates: start: 20121126, end: 20121126
  51. REBAMIPIDE [Concomitant]
     Dosage: 200 MG, QD
     Route: 048
     Dates: start: 20121127, end: 20121128
  52. REBAMIPIDE [Concomitant]
     Dosage: 300 MG, QD
     Route: 048
     Dates: start: 20121129, end: 20121129
  53. REBAMIPIDE [Concomitant]
     Dosage: 200 MG, QD
     Route: 048
     Dates: start: 20121130, end: 20121130
  54. REBAMIPIDE [Concomitant]
     Dosage: 100 MG, QD
     Route: 048
     Dates: start: 20121201, end: 20121201
  55. REBAMIPIDE [Concomitant]
     Dosage: 300 MG, QD
     Route: 048
     Dates: start: 20121202, end: 20121202
  56. REBAMIPIDE [Concomitant]
     Dosage: 200 MG, QD
     Route: 048
     Dates: start: 20121203, end: 20121204
  57. REBAMIPIDE [Concomitant]
     Dosage: 100 MG, QD
     Route: 048
     Dates: start: 20121205, end: 20121205
  58. REBAMIPIDE [Concomitant]
     Dosage: 300 MG, QD
     Route: 048
     Dates: start: 20121206, end: 20121206
  59. REBAMIPIDE [Concomitant]
     Dosage: 100 MG, QD
     Route: 048
     Dates: start: 20121207, end: 20121207
  60. REBAMIPIDE [Concomitant]
     Dosage: 200 MG, QD
     Route: 048
     Dates: start: 20121208, end: 20121208
  61. REBAMIPIDE [Concomitant]
     Dosage: 100 MG, QD
     Route: 048
     Dates: start: 20121209, end: 20121210
  62. REBAMIPIDE [Concomitant]
     Dosage: 200 MG, QD
     Route: 048
     Dates: start: 20121211, end: 20121225
  63. REBAMIPIDE [Concomitant]
     Dosage: 300 MG, QD
     Route: 048
     Dates: start: 20121226, end: 20121226
  64. REBAMIPIDE [Concomitant]
     Dosage: 200 MG, QD
     Route: 048
     Dates: start: 20121227, end: 20121227
  65. REBAMIPIDE [Concomitant]
     Dosage: 300 MG, QD
     Route: 048
     Dates: start: 20121228, end: 20121228
  66. REBAMIPIDE [Concomitant]
     Dosage: 200 MG, QD
     Route: 048
     Dates: start: 20121229, end: 20130102
  67. REBAMIPIDE [Concomitant]
     Dosage: 300 MG, QD
     Route: 048
     Dates: start: 20130103, end: 20130103
  68. REBAMIPIDE [Concomitant]
     Dosage: 100 MG, QD
     Route: 048
     Dates: start: 20130104, end: 20130104
  69. REBAMIPIDE [Concomitant]
     Dosage: 300 MG, QD
     Route: 048
     Dates: start: 20130105, end: 20130105
  70. REBAMIPIDE [Concomitant]
     Dosage: 100 MG, QD
     Route: 048
     Dates: start: 20130106, end: 20130106
  71. REBAMIPIDE [Concomitant]
     Dosage: 200 MG, QD
     Route: 048
     Dates: start: 20130107, end: 20130108
  72. REBAMIPIDE [Concomitant]
     Dosage: 100 MG, QD
     Route: 048
     Dates: start: 20130109, end: 20130109
  73. REBAMIPIDE [Concomitant]
     Dosage: 200 MG, QD
     Route: 048
     Dates: start: 20130110, end: 20130110
  74. REBAMIPIDE [Concomitant]
     Dosage: 300 MG, QD
     Route: 048
     Dates: start: 20130111, end: 20130113
  75. REBAMIPIDE [Concomitant]
     Dosage: 200 MG, QD
     Route: 048
     Dates: start: 20130114, end: 20130114
  76. REBAMIPIDE [Concomitant]
     Dosage: 300 MG, QD
     Route: 048
     Dates: start: 20130115, end: 20130117
  77. REBAMIPIDE [Concomitant]
     Dosage: 100 MG, QD
     Route: 048
     Dates: start: 20130118, end: 20130118
  78. REBAMIPIDE [Concomitant]
     Dosage: 300 MG, QD
     Route: 048
     Dates: start: 20130119, end: 20130119
  79. REBAMIPIDE [Concomitant]
     Dosage: 100 MG, QD
     Route: 048
     Dates: start: 20130120, end: 20130121
  80. REBAMIPIDE [Concomitant]
     Dosage: 200 MG, QD
     Route: 048
     Dates: start: 20130122, end: 20130122
  81. REBAMIPIDE [Concomitant]
     Dosage: 100 MG, QD
     Route: 048
     Dates: start: 20130123, end: 20130123
  82. REFLEX [Concomitant]
     Dosage: 15 MG, QD
     Route: 048
     Dates: start: 20121119, end: 20121125
  83. REFLEX [Concomitant]
     Dosage: 30 MG, QD
     Route: 048
     Dates: start: 20121126, end: 20121126
  84. REFLEX [Concomitant]
     Dosage: 15 MG, QD
     Route: 048
     Dates: start: 20121127, end: 20130123
  85. DISTILLED WATER [Concomitant]
     Dosage: 20 ML, QD
     Route: 051
     Dates: start: 20121124, end: 20121124
  86. DISTILLED WATER [Concomitant]
     Dosage: 20 ML, QD
     Route: 051
     Dates: start: 20130105, end: 20130105
  87. ANAVAN [Concomitant]
     Dosage: 25 MG, QD
     Route: 054
     Dates: start: 20121129, end: 20121212
  88. CARBENIN [Concomitant]
     Dosage: 1 G, QD
     Route: 042
     Dates: start: 20121212, end: 20130108
  89. LECICARBON [Concomitant]
     Dosage: UNK, QD
     Route: 054
     Dates: start: 20121212, end: 20121225
  90. GLYCERIN [Concomitant]
     Dosage: 60 ML, QD
     Route: 054
     Dates: start: 20121212, end: 20121225
  91. DEXALTIN [Concomitant]
     Dosage: 5 G, QD
     Route: 049
     Dates: start: 20121226, end: 20130108
  92. PRIMPERAN [Concomitant]
     Dosage: 1 AMP, QD
     Route: 051
     Dates: start: 20130113, end: 20130113
  93. VX-950 (TELAPREVIR) [Suspect]
     Indication: CHRONIC HEPATITIS C
     Dosage: 2250 MG, QD
     Route: 048
     Dates: start: 20120702, end: 20120806
  94. VX-950 (TELAPREVIR) [Suspect]
     Dosage: 1500 MG, QD
     Route: 048
     Dates: start: 20120807, end: 20120903
  95. REBETOL [Suspect]
     Indication: CHRONIC HEPATITIS C
     Dosage: 600 MG, QD
     Route: 048
     Dates: start: 20120702, end: 20120903
  96. PEGINTRON [Suspect]
     Indication: CHRONIC HEPATITIS C
     Dosage: 1 ?G/KG, QW
     Route: 058
     Dates: start: 20120702, end: 20120708
  97. PEGINTRON [Suspect]
     Dosage: 1.5 ?G/KG, QW
     Route: 058
     Dates: start: 20120709, end: 20120827
  98. PREDONINE [Concomitant]
     Dosage: 30 MG, QD
     Route: 048
     Dates: start: 20120706, end: 20120707
  99. PREDONINE [Concomitant]
     Dosage: 20 MG, QD
     Route: 048
     Dates: start: 20120708, end: 20120709
  100. PREDONINE [Concomitant]
     Dosage: 10 MG, QD
     Route: 048
     Dates: start: 20120710, end: 20120712
  101. PREDONINE [Concomitant]
     Dosage: 5 MG, QD
     Route: 048
     Dates: start: 20120713, end: 20120819
  102. PREDONINE [Concomitant]
     Dosage: 30 MG, QD
     Route: 048
     Dates: start: 20120820, end: 20120822
  103. PREDONINE [Concomitant]
     Dosage: 20 MG, QD
     Route: 048
     Dates: start: 20120823, end: 20120903
  104. TALION [Concomitant]
     Dosage: 20 MG, QD
     Route: 048
     Dates: start: 20120702, end: 20120903
  105. EPADEL [Concomitant]
     Dosage: 1800 MG, QD
     Route: 048
     Dates: start: 20120730, end: 20120903
  106. LOXOPROFEN SODIUM [Concomitant]
     Dosage: 60 MG, QD
     Route: 048
     Dates: start: 20120904, end: 20120906
  107. LOXOPROFEN SODIUM [Concomitant]
     Dosage: 120 MG, QD
     Route: 048
     Dates: start: 20120907, end: 20120907
  108. LOXOPROFEN SODIUM [Concomitant]
     Dosage: 60 MG, QD
     Route: 048
     Dates: start: 20120908, end: 20120908
  109. LOXOPROFEN SODIUM [Concomitant]
     Dosage: 120 MG, QD
     Route: 048
     Dates: start: 20120909, end: 20120909
  110. LOXOPROFEN SODIUM [Concomitant]
     Dosage: 60 MG, QD
     Route: 048
     Dates: start: 20120910, end: 20120910
  111. LOXOPROFEN SODIUM [Concomitant]
     Dosage: 60 MG, QD
     Route: 048
     Dates: start: 20121016, end: 20121017
  112. LOXOPROFEN SODIUM [Concomitant]
     Dosage: 60 MG, QD
     Route: 048
     Dates: start: 20121019, end: 20121021
  113. LOXOPROFEN SODIUM [Concomitant]
     Dosage: 180 MG, QD
     Route: 048
     Dates: start: 20121022, end: 20121023
  114. LOXOPROFEN SODIUM [Concomitant]
     Dosage: 120 MG, QD
     Route: 048
     Dates: start: 20121024, end: 20121028
  115. LOXOPROFEN SODIUM [Concomitant]
     Dosage: 180 MG, QD
     Route: 048
     Dates: start: 20121029, end: 20121029
  116. LOXOPROFEN SODIUM [Concomitant]
     Dosage: 120 MG, QD
     Route: 048
     Dates: start: 20121101, end: 20121101
  117. LOXOPROFEN SODIUM [Concomitant]
     Dosage: 180 MG, QD
     Route: 048
     Dates: start: 20121102, end: 20121102
  118. LOXOPROFEN SODIUM [Concomitant]
     Dosage: 120 MG, QD
     Route: 048
     Dates: start: 20121103, end: 20121105
  119. LOXOPROFEN SODIUM [Concomitant]
     Dosage: 180 MG, QD
     Route: 048
     Dates: start: 20121106, end: 20121106
  120. LOXOPROFEN SODIUM [Concomitant]
     Dosage: 120 MG, QD
     Route: 048
     Dates: start: 20121107, end: 20121109
  121. LOXOPROFEN SODIUM [Concomitant]
     Dosage: 180 MG, QD
     Route: 048
     Dates: start: 20121110, end: 20121110
  122. LOXOPROFEN SODIUM [Concomitant]
     Dosage: 120 MG, QD
     Route: 048
     Dates: start: 20121111, end: 20121111
  123. LOXOPROFEN SODIUM [Concomitant]
     Dosage: 60 MG, QD
     Route: 048
     Dates: start: 20121112, end: 20121112
  124. LOXOPROFEN SODIUM [Concomitant]
     Dosage: 180 MG, QD
     Route: 048
     Dates: start: 20121113, end: 20121113
  125. LOXOPROFEN SODIUM [Concomitant]
     Dosage: 120 MG, QD
     Route: 048
     Dates: start: 20121114, end: 20121114
  126. LOXOPROFEN SODIUM [Concomitant]
     Dosage: 60 MG, QD
     Route: 048
     Dates: start: 20121115, end: 20121115
  127. LOXOPROFEN SODIUM [Concomitant]
     Dosage: 120 MG, QD
     Route: 048
     Dates: start: 20121116, end: 20121116
  128. LOXOPROFEN SODIUM [Concomitant]
     Dosage: 60 MG, QD
     Route: 048
     Dates: start: 20121117, end: 20121117
  129. LOXOPROFEN SODIUM [Concomitant]
     Dosage: 120 MG, QD
     Route: 048
     Dates: start: 20121118, end: 20121119
  130. LOXOPROFEN SODIUM [Concomitant]
     Dosage: 180 MG, QD
     Route: 048
     Dates: start: 20121120, end: 20121121
  131. LOXOPROFEN SODIUM [Concomitant]
     Dosage: 120 MG, QD
     Route: 048
     Dates: start: 20121122, end: 20121122
  132. LOXOPROFEN SODIUM [Concomitant]
     Dosage: 60 MG, QD
     Route: 048
     Dates: start: 20121123, end: 20121123
  133. LOXOPROFEN SODIUM [Concomitant]
     Dosage: 120 MG, QD
     Route: 048
     Dates: start: 20121124, end: 20121125
  134. LOXOPROFEN SODIUM [Concomitant]
     Dosage: 60 MG, QD
     Route: 048
     Dates: start: 20121126, end: 20121126
  135. LOXOPROFEN SODIUM [Concomitant]
     Dosage: 120 MG, QD
     Route: 048
     Dates: start: 20121127, end: 20121127
  136. LOXOPROFEN SODIUM [Concomitant]
     Dosage: 180 MG, QD
     Route: 048
     Dates: start: 20121128, end: 20121130
  137. LOXOPROFEN SODIUM [Concomitant]
     Dosage: 60 MG, QD
     Route: 048
     Dates: start: 20121201, end: 20121201
  138. LOXOPROFEN SODIUM [Concomitant]
     Dosage: 180 MG, QD
     Route: 048
     Dates: start: 20121202, end: 20121202
  139. LOXOPROFEN SODIUM [Concomitant]
     Dosage: 60 MG, QD
     Route: 048
     Dates: start: 20121203, end: 20121203
  140. LOXOPROFEN SODIUM [Concomitant]
     Dosage: 120 MG, QD
     Route: 048
     Dates: start: 20121204, end: 20121204
  141. LOXOPROFEN SODIUM [Concomitant]
     Dosage: 60 MG, QD
     Route: 048
     Dates: start: 20121205, end: 20121205
  142. LOXOPROFEN SODIUM [Concomitant]
     Dosage: 180 MG, QD
     Route: 048
     Dates: start: 20121206, end: 20121206
  143. LOXOPROFEN SODIUM [Concomitant]
     Dosage: 60 MG, QD
     Route: 048
     Dates: start: 20121207, end: 20121207
  144. LOXOPROFEN SODIUM [Concomitant]
     Dosage: 120 MG, QD
     Route: 048
     Dates: start: 20121208, end: 20121208
  145. LOXOPROFEN SODIUM [Concomitant]
     Dosage: 60 MG, QD
     Route: 048
     Dates: start: 20121209, end: 20121209
  146. LOXOPROFEN SODIUM [Concomitant]
     Dosage: 120 MG, QD
     Route: 048
     Dates: start: 20121210, end: 20121211
  147. LOXOPROFEN SODIUM [Concomitant]
     Dosage: 60 MG, QD
     Route: 048
     Dates: start: 20121212, end: 20121212
  148. LOXOPROFEN SODIUM [Concomitant]
     Dosage: 180 MG, QD
     Route: 048
     Dates: start: 20121213, end: 20121214
  149. LOXOPROFEN SODIUM [Concomitant]
     Dosage: 60 MG, QD
     Route: 048
     Dates: start: 20121215, end: 20121216
  150. LOXOPROFEN SODIUM [Concomitant]
     Dosage: 120 MG, QD
     Route: 048
     Dates: start: 20121217, end: 20121219
  151. LOXOPROFEN SODIUM [Concomitant]
     Dosage: 60 MG, QD
     Route: 048
     Dates: start: 20121220, end: 20121220
  152. LOXOPROFEN SODIUM [Concomitant]
     Dosage: 120 MG, QD
     Route: 048
     Dates: start: 20121221, end: 20121222
  153. LOXOPROFEN SODIUM [Concomitant]
     Dosage: 60 MG, QD
     Route: 048
     Dates: start: 20121223, end: 20121223
  154. LOXOPROFEN SODIUM [Concomitant]
     Dosage: 120 MG, QD
     Route: 048
     Dates: start: 20121224, end: 20121225
  155. LOXOPROFEN SODIUM [Concomitant]
     Dosage: 180 MG, QD
     Route: 048
     Dates: start: 20121226, end: 20121226
  156. MIXTURE OF MYSER OINTMENT AND PETROLEUM JELLY (1:1) [Concomitant]
     Dosage: 50 G, QD
     Route: 061
     Dates: start: 20120906, end: 20120906
  157. MIXTURE OF MYSER OINTMENT AND PETROLEUM JELLY (1:1) [Concomitant]
     Dosage: 100 G, QD
     Route: 061
     Dates: start: 20120910, end: 20120910
  158. MIXTURE OF MYSER OINTMENT AND PETROLEUM JELLY (1:1) [Concomitant]
     Dosage: 50 G, QD
     Route: 061
     Dates: start: 20120919, end: 20120919
  159. MIXTURE OF MYSER OINTMENT AND PETROLEUM JELLY (1:1) [Concomitant]
     Dosage: 50 G, QD
     Route: 061
     Dates: start: 20121011, end: 20121013
  160. MIXTURE OF MYSER OINTMENT AND PETROLEUM JELLY (1:1) [Concomitant]
     Dosage: 50 G, QD
     Route: 061
     Dates: start: 20121019, end: 20121019
  161. MIXTURE OF MYSER OINTMENT AND PETROLEUM JELLY (1:1) [Concomitant]
     Dosage: 50 G, QD
     Route: 061
     Dates: start: 20121023, end: 20121024
  162. HEPAFLUSH [Concomitant]
     Dosage: 1 DF, QD
     Route: 051
     Dates: start: 20120907, end: 20120907
  163. HEPAFLUSH [Concomitant]
     Dosage: 1 DF, QD
     Route: 051
     Dates: start: 20120910, end: 20120911
  164. HEPAFLUSH [Concomitant]
     Dosage: 1 DF, QD
     Route: 051
     Dates: start: 20120913, end: 20120914
  165. HEPAFLUSH [Concomitant]
     Dosage: 1 DF, QD
     Route: 051
     Dates: start: 20120917, end: 20120918
  166. HEPAFLUSH [Concomitant]
     Dosage: 5 DF, QD
     Route: 051
     Dates: start: 20120919, end: 20120919
  167. HEPAFLUSH [Concomitant]
     Dosage: 1 DF, QD
     Route: 051
     Dates: start: 20120921, end: 20120923
  168. HEPAFLUSH [Concomitant]
     Dosage: 2 DF, QD
     Route: 051
     Dates: start: 20120924, end: 20120924
  169. HEPAFLUSH [Concomitant]
     Dosage: 1 DF, QD
     Route: 051
     Dates: start: 20120925, end: 20120925
  170. HEPAFLUSH [Concomitant]
     Dosage: 1 DF, QD
     Route: 051
     Dates: start: 20120927, end: 20120927
  171. HEPAFLUSH [Concomitant]
     Dosage: 1 DF, QD
     Route: 051
     Dates: start: 20121003, end: 20121003
  172. HEPAFLUSH [Concomitant]
     Dosage: 1 DF, QD
     Route: 051
     Dates: start: 20121007, end: 20121007
  173. HEPAFLUSH [Concomitant]
     Dosage: 1 DF, QD
     Route: 051
     Dates: start: 20121013, end: 20121014
  174. HEPAFLUSH [Concomitant]
     Dosage: 1 DF, QD
     Route: 051
     Dates: start: 20121019, end: 20121019
  175. HEPAFLUSH [Concomitant]
     Dosage: 1 DF, QD
     Route: 051
     Dates: start: 20121023, end: 20121023
  176. HEPAFLUSH [Concomitant]
     Dosage: 1 DF, QD
     Route: 051
     Dates: start: 20121108, end: 20121108
  177. HEPAFLUSH [Concomitant]
     Dosage: 1 DF, QD
     Route: 051
     Dates: start: 20121110, end: 20121110
  178. HEPAFLUSH [Concomitant]
     Dosage: 1 DF, QD
     Route: 051
     Dates: start: 20121116, end: 20121117
  179. HEPAFLUSH [Concomitant]
     Dosage: 1 DF, QD
     Route: 051
     Dates: start: 20121125, end: 20121125
  180. HEPAFLUSH [Concomitant]
     Dosage: 1 DF, QD
     Route: 051
     Dates: start: 20121128, end: 20121128
  181. HEPAFLUSH [Concomitant]
     Dosage: 1 DF, QD
     Route: 051
     Dates: start: 20121130, end: 20121201
  182. HEPAFLUSH [Concomitant]
     Dosage: 1 DF, QD
     Route: 051
     Dates: start: 20121204, end: 20121204
  183. HEPAFLUSH [Concomitant]
     Dosage: 1 DF, QD
     Route: 051
     Dates: start: 20121206, end: 20121206
  184. HEPAFLUSH [Concomitant]
     Dosage: 1 DF, QD
     Route: 051
     Dates: start: 20121209, end: 20121209
  185. HEPAFLUSH [Concomitant]
     Dosage: 1 DF, QD
     Route: 051
     Dates: start: 20121211, end: 20121211
  186. HEPAFLUSH [Concomitant]
     Dosage: 1 DF, QD
     Route: 051
     Dates: start: 20121216, end: 20121216
  187. HEPAFLUSH [Concomitant]
     Dosage: 1 DF, QD
     Route: 051
     Dates: start: 20121219, end: 20121219
  188. HEPAFLUSH [Concomitant]
     Dosage: 1 DF, QD
     Route: 051
     Dates: start: 20121226, end: 20121228
  189. HEPAFLUSH [Concomitant]
     Dosage: 1 DF, QD
     Route: 051
     Dates: start: 20121231, end: 20121231
  190. HEPAFLUSH [Concomitant]
     Dosage: 2 DF, QD
     Route: 051
     Dates: start: 20130102, end: 20130102
  191. HEPAFLUSH [Concomitant]
     Dosage: 1 DF, QD
     Route: 051
     Dates: start: 20130109, end: 20130111
  192. HEPAFLUSH [Concomitant]
     Dosage: 1 DF, QD
     Route: 051
     Dates: start: 20130115, end: 20130115
  193. XYLOCAINE POLYAMP [Concomitant]
     Dosage: 10 ML, QD
     Route: 051
     Dates: start: 20120910, end: 20120910
  194. SOLYUGEN 1 [Concomitant]
     Dosage: 500 MG, QD
     Route: 051
     Dates: start: 20120910, end: 20120919
  195. SOLYUGEN 1 [Concomitant]
     Dosage: 500 ML, QD
     Route: 051
     Dates: start: 20121115, end: 20121115
  196. VITAMEDIN [Concomitant]
     Dosage: 1 DF, QD
     Route: 042
     Dates: start: 20120910, end: 20120918
  197. SAXIZON [Concomitant]
     Dosage: 100 MG, QD
     Route: 051
     Dates: start: 20120913, end: 20120919
  198. SAXIZON [Concomitant]
     Dosage: 200 MG, QD
     Route: 051
     Dates: start: 20120927, end: 20120927
  199. SAXIZON [Concomitant]
     Dosage: 100 MG, QD
     Route: 051
     Dates: start: 20121014, end: 20121014
  200. SAXIZON [Concomitant]
     Dosage: 300 MG, QD
     Route: 051
     Dates: start: 20121124, end: 20121124
  201. SAXIZON [Concomitant]
     Dosage: 100 MG, QD
     Route: 051
     Dates: start: 20130104, end: 20130104
  202. MEROPENEM [Concomitant]
     Dosage: 1 G, QD
     Route: 042
     Dates: start: 20120913, end: 20120918
  203. MEROPENEM [Concomitant]
     Dosage: 0.5 G, QD
     Route: 042
     Dates: start: 20120919, end: 20121001
  204. MAGMITT [Concomitant]
     Dosage: 1500 MG, QD
     Route: 048
     Dates: start: 20120914, end: 20120914
  205. SENNAL [Concomitant]
     Dosage: 24 MG, QD
     Route: 048
     Dates: start: 20120914, end: 20120923
  206. SENNAL [Concomitant]
     Dosage: 12 MG, QD
     Route: 048
     Dates: start: 20121224, end: 20130122
  207. SENNAL [Concomitant]
     Dosage: 24 MG, QD
     Route: 048
     Dates: start: 20130123, end: 20130123
  208. SALINE [Concomitant]
     Dosage: 200 ML, QD
     Route: 051
     Dates: start: 20120914, end: 20120917
  209. SALINE [Concomitant]
     Dosage: 100 ML, QD
     Route: 051
     Dates: start: 20120918, end: 20120919
  210. SALINE [Concomitant]
     Dosage: 200 ML, QD
     Route: 051
     Dates: start: 20120925, end: 20120925
  211. SALINE [Concomitant]
     Dosage: 100 ML, QD
     Route: 051
     Dates: start: 20120926, end: 20121001
  212. SALINE [Concomitant]
     Dosage: 100 ML, QD
     Route: 051
     Dates: start: 20121014, end: 20121014
  213. SALINE [Concomitant]
     Dosage: 200 ML, QD
     Route: 051
     Dates: start: 20121015, end: 20121016
  214. SALINE [Concomitant]
     Dosage: 100 ML, QD
     Route: 051
     Dates: start: 20121017, end: 20121026
  215. SALINE [Concomitant]
     Dosage: 100 ML, QD
     Route: 051
     Dates: start: 20121108, end: 20121109
  216. SALINE [Concomitant]
     Dosage: 200 ML, QD
     Route: 051
     Dates: start: 20121212, end: 20130108
  217. VANCOMYCIN [Concomitant]
     Dosage: 2 G, QD
     Route: 042
     Dates: start: 20120914, end: 20120917
  218. VANCOMYCIN [Concomitant]
     Dosage: 1 G, QD
     Route: 042
     Dates: start: 20120918, end: 20120919
  219. VANCOMYCIN [Concomitant]
     Dosage: 1 G, QD
     Route: 042
     Dates: start: 20120925, end: 20120925
  220. VANCOMYCIN [Concomitant]
     Dosage: 0.5 G, QD
     Route: 042
     Dates: start: 20120926, end: 20120926
  221. VANCOMYCIN [Concomitant]
     Dosage: 1.5 G, QD
     Route: 042
     Dates: start: 20120927, end: 20121001
  222. VANCOMYCIN [Concomitant]
     Dosage: 0.5 G, QD
     Route: 042
     Dates: start: 20121014, end: 20121016
  223. LASIX [Concomitant]
     Dosage: 20 MG, QD
     Route: 051
     Dates: start: 20120919, end: 20120920
  224. LASIX [Concomitant]
     Dosage: 40 MG, QD
     Route: 051
     Dates: start: 20120921, end: 20120921
  225. LASIX [Concomitant]
     Dosage: 20 MG, QD
     Route: 051
     Dates: start: 20120922, end: 20120922
  226. LASIX [Concomitant]
     Dosage: 40 MG, QD
     Route: 051
     Dates: start: 20120923, end: 20121002
  227. LASIX [Concomitant]
     Dosage: 20 MG, QD
     Route: 051
     Dates: start: 20121003, end: 20121003
  228. LASIX [Concomitant]
     Dosage: 20 MG, QD
     Route: 051
     Dates: start: 20121119, end: 20121125
  229. ELASPOL [Concomitant]
     Dosage: 300 MG, QD
     Route: 051
     Dates: start: 20120919, end: 20120923
  230. ISOTONIC SODIUM CHLORIDE SOLUTION [Concomitant]
     Dosage: 500 ML, QD
     Route: 051
     Dates: start: 20120919, end: 20120923
  231. SOL-MELCORT [Concomitant]
     Dosage: 125 MG, QD
     Route: 051
     Dates: start: 20120919, end: 20120921
  232. SOL-MELCORT [Concomitant]
     Dosage: 125 MG, QD
     Route: 051
     Dates: start: 20121124, end: 20121126
  233. RECOMODULIN [Concomitant]
     Dosage: 2 DF, QD
     Route: 042
     Dates: start: 20120919, end: 20120924
  234. XYLOCAINE [Concomitant]
     Dosage: 60 ML, QD
     Route: 051
     Dates: start: 20120919, end: 20120919
  235. XYLOCAINE [Concomitant]
     Dosage: 60 ML, QD
     Route: 051
     Dates: start: 20121108, end: 20121108
  236. XYLOCAINE [Concomitant]
     Dosage: 50 ML, QD
     Route: 051
     Dates: start: 20121109, end: 20121114
  237. XYLOCAINE [Concomitant]
     Dosage: 50 ML, QD
     Route: 051
     Dates: start: 20121117, end: 20121120
  238. XYLOCAINE [Concomitant]
     Dosage: 50 ML, QD
     Route: 051
     Dates: start: 20121128, end: 20121203
  239. XYLOCAINE [Concomitant]
     Dosage: 10 ML, QD
     Route: 051
     Dates: start: 20121204, end: 20121204
  240. SEISHOKU [Concomitant]
     Dosage: 20 ML, QD
     Route: 051
     Dates: start: 20120919, end: 20120927
  241. SEISHOKU [Concomitant]
     Dosage: 60 ML, QD
     Route: 051
     Dates: start: 20120928, end: 20120930
  242. SEISHOKU [Concomitant]
     Dosage: 40 ML, QD
     Route: 051
     Dates: start: 20121001, end: 20121003
  243. DORMICUM [Concomitant]
     Dosage: 1 AMP, QD
     Route: 051
     Dates: start: 20120919, end: 20120919
  244. GENTACIN [Concomitant]
     Dosage: 10 G, QD
     Route: 061
     Dates: start: 20120919, end: 20120919
  245. GENTACIN [Concomitant]
     Dosage: 10 G, QD
     Route: 061
     Dates: start: 20121011, end: 20121024
  246. FULCALIQ [Concomitant]
     Dosage: 903 ML, QD
     Route: 051
     Dates: start: 20120920, end: 20120928
  247. CUBICIN [Concomitant]
     Dosage: 350 MG, QD
     Route: 042
     Dates: start: 20120920, end: 20121001
  248. CUBICIN [Concomitant]
     Dosage: 350 MG, QD
     Route: 042
     Dates: start: 20121015, end: 20121026
  249. CUBICIN [Concomitant]
     Dosage: 350 MG, QD
     Route: 042
     Dates: start: 20121108, end: 20121211
  250. PROPOFOL [Concomitant]
     Dosage: 5 DF, QD
     Route: 051
     Dates: start: 20120920, end: 20120920
  251. PROPOFOL [Concomitant]
     Dosage: 2 DF, QD
     Route: 051
     Dates: start: 20120921, end: 20120922
  252. PROPOFOL [Concomitant]
     Dosage: 3 DF, QD
     Route: 051
     Dates: start: 20120923, end: 20120923
  253. PROPOFOL [Concomitant]
     Dosage: 1 DF, QD
     Route: 051
     Dates: start: 20120924, end: 20120924
  254. OMEPRAZOLE [Concomitant]
     Dosage: 40 MG, QD
     Route: 051
     Dates: start: 20120920, end: 20121003
  255. HUMULIN R [Concomitant]
     Dosage: 4 ML, QD
     Route: 051
     Dates: start: 20120920, end: 20120920
  256. HUMULIN R [Concomitant]
     Dosage: 6 ML, QD
     Route: 051
     Dates: start: 20120921, end: 20120921
  257. HUMULIN R [Concomitant]
     Dosage: 2 ML, QD
     Route: 051
     Dates: start: 20120929, end: 20120929
  258. HUMULIN R [Concomitant]
     Dosage: 2 ML, QD
     Route: 051
     Dates: start: 20121002, end: 20121002
  259. FENTANYL [Concomitant]
     Dosage: 1 MG, QD
     Route: 051
     Dates: start: 20120921, end: 20120924
  260. SERENACE [Concomitant]
     Dosage: 1 AMP, QD
     Route: 051
     Dates: start: 20120925, end: 20120925
  261. FULCALIQ [Concomitant]
     Dosage: 1003 ML, QD
     Route: 051
     Dates: start: 20120929, end: 20121005
  262. PREDNISOLONE [Concomitant]
     Dosage: 20 MG, QD
     Route: 048
     Dates: start: 20121004, end: 20121010
  263. PREDNISOLONE [Concomitant]
     Dosage: 15 MG, QD
     Route: 048
     Dates: start: 20121011, end: 20121016
  264. PREDNISOLONE [Concomitant]
     Dosage: 10 MG, QD
     Route: 048
     Dates: start: 20121017, end: 20121022
  265. PREDNISOLONE [Concomitant]
     Dosage: 5 MG, QD
     Route: 048
     Dates: start: 20121023, end: 20121029
  266. PREDNISOLONE [Concomitant]
     Dosage: 15 MG, QD
     Route: 048
     Dates: start: 20130117, end: 20130123
  267. PARIET [Concomitant]
     Dosage: 10 MG, QD
     Route: 048
     Dates: start: 20120904, end: 20120910
  268. PARIET [Concomitant]
     Dosage: 10 MG, QD
     Route: 048
     Dates: start: 20121004, end: 20121029
  269. PARIET [Concomitant]
     Dosage: 10 MG, QD
     Route: 048
     Dates: start: 20121101, end: 20130123
  270. FEBURIC [Concomitant]
     Dosage: 10 MG, QD
     Route: 048
     Dates: start: 20120904, end: 20120910
  271. BFLUID [Concomitant]
     Dosage: 500 ML, QD
     Route: 042
     Dates: start: 20120904, end: 20120919
  272. BFLUID [Concomitant]
     Dosage: 500 ML, QD
     Route: 042
     Dates: start: 20121006, end: 20121030
  273. BFLUID [Concomitant]
     Dosage: 500 ML, QD
     Route: 042
     Dates: start: 20121119, end: 20121122
  274. VEEN 3G [Concomitant]
     Dosage: 500 ML, QD
     Route: 051
     Dates: start: 20120904, end: 20120907
  275. WYSTAL [Concomitant]
     Dosage: 1 G, QD
     Route: 051
     Dates: start: 20120904, end: 20120904
  276. WYSTAL [Concomitant]
     Dosage: 2 G, QD
     Route: 051
     Dates: start: 20120905, end: 20120912
  277. PREDONINE [Concomitant]
     Dosage: 20 MG, QD
     Route: 051
     Dates: start: 20120904, end: 20120913
  278. PREDONINE [Concomitant]
     Dosage: 35 MG, QD
     Route: 051
     Dates: start: 20120914, end: 20120914
  279. PREDONINE [Concomitant]
     Dosage: 15 MG, QD
     Route: 051
     Dates: start: 20120915, end: 20120919
  280. PREDONINE [Concomitant]
     Dosage: 30 MG, QD
     Route: 051
     Dates: start: 20120927, end: 20121003
  281. PREDONINE [Concomitant]
     Dosage: 30 MG, QD
     Route: 051
     Dates: start: 20121127, end: 20121203
  282. PREDONINE [Concomitant]
     Dosage: 20 MG, QD
     Route: 051
     Dates: start: 20121204, end: 20121210
  283. PREDONINE [Concomitant]
     Dosage: 10 MG, QD
     Route: 051
     Dates: start: 20121211, end: 20121211
  284. PREDONINE [Concomitant]
     Dosage: 60 MG, QD
     Route: 051
     Dates: start: 20121212, end: 20121221
  285. PREDONINE [Concomitant]
     Dosage: 50 MG, QD
     Route: 051
     Dates: start: 20121222, end: 20121228
  286. PREDONINE [Concomitant]
     Dosage: 40 MG, QD
     Route: 051
     Dates: start: 20121230, end: 20130104
  287. PREDONINE [Concomitant]
     Dosage: 30 MG, QD
     Route: 051
     Dates: start: 20130105, end: 20130111
  288. PREDONINE [Concomitant]
     Dosage: 20 MG, QD
     Route: 051
     Dates: start: 20130112, end: 20130116
  289. SOSEGON [Concomitant]
     Dosage: 15 MG, QD
     Route: 051
     Dates: start: 20120904, end: 20120904
  290. SOSEGON [Concomitant]
     Dosage: 100 MG, QD
     Route: 051
     Dates: start: 20120919, end: 20120919
  291. SOSEGON [Concomitant]
     Dosage: 30 MG, QD
     Route: 051
     Dates: start: 20121014, end: 20121014
  292. SOSEGON [Concomitant]
     Dosage: 15 MG, QD
     Route: 051
     Dates: start: 20130121, end: 20130121
  293. SOSEGON [Concomitant]
     Dosage: 30 MG, QD
     Route: 051
     Dates: start: 20130123, end: 20130123
  294. ANTEBATE [Concomitant]
     Dosage: 50 G, QD
     Route: 061
     Dates: start: 20120904, end: 20120904
  295. GOODMIN [Concomitant]
     Dosage: AT THE TIME OF INSOMNIA, 10 MG, FOR 10 DOSE
     Route: 048
     Dates: start: 20120904, end: 20120904
  296. GOODMIN [Concomitant]
     Dosage: 0.25 MG, QD
     Route: 048
     Dates: start: 20120924, end: 20120924
  297. FERROMIA [Concomitant]
     Dosage: 100 MG, QD
     Route: 048
     Dates: start: 20121005, end: 20121006
  298. ALDACTONE A [Concomitant]
     Dosage: 25 MG, QD
     Route: 048
     Dates: start: 20121011, end: 20121029
  299. ALDACTONE A [Concomitant]
     Dosage: 25 MG, QD
     Route: 048
     Dates: start: 20121101, end: 20130123
  300. LIVACT [Concomitant]
     Dosage: 8.3 G, QD
     Route: 048
     Dates: start: 20121011, end: 20121011
  301. CEFTRIAXONE SODIUM [Concomitant]
     Dosage: 2 G, QD
     Route: 042
     Dates: start: 20121012, end: 20121013
  302. CEFTRIAXONE SODIUM [Concomitant]
     Dosage: 1 G, QD
     Route: 042
     Dates: start: 20121014, end: 20121014
  303. ATARAX-P [Concomitant]
     Dosage: 1 AMP, QD
     Route: 051
     Dates: start: 20121014, end: 20121014
  304. SOLITA-T3 [Concomitant]
     Dosage: 500 ML, QD
     Route: 051
     Dates: start: 20121014, end: 20121015
  305. SOLITA-T3 [Concomitant]
     Dosage: 500 ML, QD
     Route: 051
     Dates: start: 20121017, end: 20121019
  306. WYPAX [Concomitant]
     Dosage: 0.5 MG, QD
     Route: 048
     Dates: start: 20121015, end: 20121016
  307. WYPAX [Concomitant]
     Dosage: 0.5 MG, QD
     Route: 048
     Dates: start: 20121031, end: 20121031
  308. WYPAX [Concomitant]
     Dosage: 0.5 MG, QD
     Route: 048
     Dates: start: 20121105, end: 20121107
  309. WYPAX [Concomitant]
     Dosage: 1 MG, QD
     Route: 048
     Dates: start: 20121108, end: 20121108
  310. WYPAX [Concomitant]
     Dosage: 0.5 MG, QD
     Route: 048
     Dates: start: 20121109, end: 20121120
  311. RISPERIDONE [Concomitant]
     Dosage: 0.5 MG, QD
     Route: 048
     Dates: start: 20121015, end: 20121016
  312. RISPERIDONE [Concomitant]
     Dosage: 0.5 MG, QD
     Route: 048
     Dates: start: 20121031, end: 20121031
  313. ROZEREM [Concomitant]
     Dosage: 8 MG, QD
     Route: 048
     Dates: start: 20121018, end: 20121024
  314. ROZEREM [Concomitant]
     Dosage: 16 MG, QD
     Route: 048
     Dates: start: 20121025, end: 20121026
  315. ROZEREM [Concomitant]
     Dosage: 8 MG, QD
     Route: 048
     Dates: start: 20121027, end: 20121107
  316. ROZEREM [Concomitant]
     Dosage: 16 MG, QD
     Route: 048
     Dates: start: 20121108, end: 20121108
  317. ROZEREM [Concomitant]
     Dosage: 8 MG, QD
     Route: 048
     Dates: start: 20121109, end: 20121118

REACTIONS (18)
  - Infective spondylitis [Fatal]
  - Hepatic cirrhosis [Fatal]
  - Disuse syndrome [Fatal]
  - Infectious pleural effusion [Fatal]
  - Subarachnoid haemorrhage [Fatal]
  - C-reactive protein increased [Not Recovered/Not Resolved]
  - Hypoalbuminaemia [Not Recovered/Not Resolved]
  - Acute respiratory distress syndrome [Recovered/Resolved]
  - Chest wall abscess [Not Recovered/Not Resolved]
  - Sepsis [Recovered/Resolved]
  - Sepsis [Not Recovered/Not Resolved]
  - Pancytopenia [Not Recovered/Not Resolved]
  - Disseminated intravascular coagulation [Recovered/Resolved]
  - Renal impairment [Recovered/Resolved]
  - Rash generalised [Recovered/Resolved]
  - Erythema [Unknown]
  - Anaemia [Unknown]
  - Staphylococcal sepsis [Fatal]
